FAERS Safety Report 16353238 (Version 1)
Quarter: 2019Q2

REPORT INFORMATION
  Report Type: Spontaneous
  Country: US (occurrence: US)
  Receive Date: 20190524
  Receipt Date: 20190524
  Transmission Date: 20190711
  Serious: No
  Sender: FDA-Public Use
  Company Number: US-ASTRAZENECA-2019SE36230

PATIENT
  Sex: Male
  Weight: 88.5 kg

DRUGS (1)
  1. TUDORZA PRESSAIR [Suspect]
     Active Substance: ACLIDINIUM BROMIDE
     Dosage: 400 MCG ONE PUFF TWICE DAILY FOR ABOUT A YEAR
     Route: 055

REACTIONS (3)
  - Product dose omission [Unknown]
  - Respiratory distress [Unknown]
  - Device malfunction [Unknown]
